FAERS Safety Report 17280630 (Version 1)
Quarter: 2020Q1

REPORT INFORMATION
  Report Type: Spontaneous
  Country: US (occurrence: US)
  Receive Date: 20200117
  Receipt Date: 20200117
  Transmission Date: 20200409
  Serious: No
  Sender: FDA-Public Use
  Company Number: US-UCBSA-2019038413

PATIENT
  Sex: Female
  Weight: 57 kg

DRUGS (4)
  1. METOPROLOL. [Concomitant]
     Active Substance: METOPROLOL
     Indication: HYPERTENSION
  2. DILANTIN [Concomitant]
     Active Substance: PHENYTOIN
     Dosage: UNK, 3X/DAY (TID)
     Route: 048
     Dates: start: 20181212, end: 20190205
  3. KEPPRA [Suspect]
     Active Substance: LEVETIRACETAM
     Indication: SEIZURE
     Dosage: 750 MG MORNING AND 1000 MG EVENING
     Route: 048
     Dates: start: 20190217
  4. DILANTIN [Concomitant]
     Active Substance: PHENYTOIN
     Indication: SEIZURE
     Dosage: UNK, 2X/DAY (BID)
     Route: 048
     Dates: end: 20181211

REACTIONS (1)
  - No adverse event [Unknown]
